FAERS Safety Report 4473717-0 (Version None)
Quarter: 2004Q4

REPORT INFORMATION
  Report Type: 
  Country: None (occurrence: None)
  Receive Date: 20040909
  Receipt Date: 20030814
  Transmission Date: 20050328
  Serious: No
  Sender: FDA-Public Use
  Company Number: APP200301788

PATIENT
  Age: 25 Year
  Sex: Female

DRUGS (5)
  1. OXYTOCIN [Suspect]
     Indication: LABOUR INDUCTION
     Dosage: INJECTION
     Dates: start: 20030813, end: 20030813
  2. COLACE (DOCUSATE SODIUM) [Concomitant]
  3. DULCOLAX [Concomitant]
  4. TYLENOL W/ CODEINE NO. 3 [Concomitant]
  5. MOTRIN [Concomitant]

REACTIONS (1)
  - DRUG INEFFECTIVE [None]
